FAERS Safety Report 6015023-9 (Version None)
Quarter: 2008Q4

REPORT INFORMATION
  Report Type: 
  Country: None (occurrence: None)
  Receive Date: 20081221
  Receipt Date: 20081211
  Transmission Date: 20090506
  Serious: Yes (Other)
  Sender: FDA-Public Use
  Company Number: PHHY2008CA31598

PATIENT

DRUGS (1)
  1. DIOVAN [Suspect]
     Route: 048

REACTIONS (2)
  - ANGIOPLASTY [None]
  - BLOOD PRESSURE INCREASED [None]
